FAERS Safety Report 18852658 (Version 2)
Quarter: 2021Q1

REPORT INFORMATION
  Report Type: Other
  Country: US (occurrence: US)
  Receive Date: 20210205
  Receipt Date: 20210218
  Transmission Date: 20210420
  Serious: Yes (Other)
  Sender: FDA-Public Use
  Company Number: US-ACORDA-ACO_167728_2021

PATIENT
  Age: 69 Year
  Sex: Female

DRUGS (2)
  1. AMPYRA [Suspect]
     Active Substance: DALFAMPRIDINE
     Indication: GAIT DISTURBANCE
     Dosage: UNK
     Route: 065
  2. TECFIDERA [Suspect]
     Active Substance: DIMETHYL FUMARATE
     Indication: MULTIPLE SCLEROSIS
     Dosage: 240 MILLIGRAM, BID
     Route: 048
     Dates: start: 202001

REACTIONS (3)
  - White blood cell count abnormal [Unknown]
  - Hot flush [Unknown]
  - Dyspepsia [Recovered/Resolved]

NARRATIVE: CASE EVENT DATE: 202011
